FAERS Safety Report 9741483 (Version 1)
Quarter: 2013Q4

REPORT INFORMATION
  Report Type: Spontaneous
  Country: GB (occurrence: GB)
  Receive Date: 20131209
  Receipt Date: 20131209
  Transmission Date: 20140711
  Serious: Yes (Other)
  Sender: FDA-Public Use
  Company Number: GB-MYLANLABS-2013S1026714

PATIENT
  Age: 45 Year
  Sex: Male

DRUGS (4)
  1. BACLOFEN [Suspect]
     Indication: BACK PAIN
  2. AMITRIPTYLINE [Concomitant]
     Indication: PRODUCT USED FOR UNKNOWN INDICATION
  3. NAPROXEN [Concomitant]
     Indication: PAIN
  4. SUBUTEX [Concomitant]
     Indication: DRUG DEPENDENCE

REACTIONS (3)
  - Lethargy [Unknown]
  - Depressed mood [Unknown]
  - Paranoia [Unknown]
